FAERS Safety Report 8446517-4 (Version None)
Quarter: 2012Q2

REPORT INFORMATION
  Report Type: 
  Country: None (occurrence: None)
  Receive Date: 20120618
  Receipt Date: 20120613
  Transmission Date: 20120825
  Serious: Yes (Hospitalization, Other)
  Sender: FDA-Public Use
  Company Number: US-MERCK-1204USA00884

PATIENT
  Age: 55 Year
  Sex: Female
  Weight: 113 kg

DRUGS (2)
  1. FOSAMAX [Suspect]
     Indication: OSTEOPOROSIS
     Route: 048
     Dates: start: 20030101, end: 20100101
  2. FOSAMAX [Suspect]
     Indication: OSTEOPENIA
     Route: 048
     Dates: start: 20030101, end: 20100101

REACTIONS (31)
  - FEMUR FRACTURE [None]
  - BLADDER DISORDER [None]
  - CHOLELITHIASIS [None]
  - OSTEOARTHRITIS [None]
  - NEPHROPATHY [None]
  - HEARING IMPAIRED [None]
  - ANORECTAL DISORDER [None]
  - JOINT EFFUSION [None]
  - WEIGHT INCREASED [None]
  - SLEEP APNOEA SYNDROME [None]
  - IMPAIRED HEALING [None]
  - COLON ADENOMA [None]
  - PNEUMONIA [None]
  - SYSTEMIC INFLAMMATORY RESPONSE SYNDROME [None]
  - ANAEMIA [None]
  - NEUROPATHY PERIPHERAL [None]
  - LOW TURNOVER OSTEOPATHY [None]
  - UPPER RESPIRATORY TRACT INFECTION [None]
  - GASTROENTERITIS [None]
  - BREAST CANCER IN SITU [None]
  - SYSTEMIC LUPUS ERYTHEMATOSUS [None]
  - CARDIAC FAILURE CONGESTIVE [None]
  - RETINOPATHY [None]
  - LUNG NEOPLASM [None]
  - DIABETES MELLITUS INADEQUATE CONTROL [None]
  - BINGE EATING [None]
  - HYPERCHOLESTEROLAEMIA [None]
  - SWELLING [None]
  - BRONCHITIS [None]
  - FALL [None]
  - FIBROMYALGIA [None]
